FAERS Safety Report 5531789-6 (Version None)
Quarter: 2007Q4

REPORT INFORMATION
  Report Type: 
  Country: None (occurrence: None)
  Receive Date: 20071128
  Receipt Date: 20071113
  Transmission Date: 20080405
  Serious: Yes (Hospitalization)
  Sender: FDA-Public Use
  Company Number: 2006BI016410

PATIENT
  Age: 56 Year
  Sex: Male

DRUGS (2)
  1. NATALIZUMAB [Suspect]
     Indication: MULTIPLE SCLEROSIS
     Dosage: 300 MG;QM;IV
     Route: 042
     Dates: start: 20061005
  2. CHEMOTHERAPY UNSPECIFIED [Concomitant]

REACTIONS (3)
  - DEVICE RELATED INFECTION [None]
  - HYPOTONIA [None]
  - NERVOUS SYSTEM DISORDER [None]
